FAERS Safety Report 4285619-3 (Version None)
Quarter: 2004Q1

REPORT INFORMATION
  Report Type: 
  Country: None (occurrence: None)
  Receive Date: 20040203
  Receipt Date: 20040122
  Transmission Date: 20041129
  Serious: Yes (Death)
  Sender: FDA-Public Use
  Company Number: DE-JNJFOC-20040105185

PATIENT
  Age: 51 Year
  Sex: Male

DRUGS (1)
  1. INFLIXIMAB (INFLIXIMAB, RECOMBINANT) LYOPHILIZED POWDER [Suspect]
     Indication: CHONDRITIS
     Dosage: 3 MG/KG, INTRAVENOUS
     Route: 042

REACTIONS (9)
  - ACUTE FEBRILE NEUTROPHILIC DERMATOSIS [None]
  - DISEASE RECURRENCE [None]
  - MULTI-ORGAN FAILURE [None]
  - MYALGIA [None]
  - PATHOGEN RESISTANCE [None]
  - PNEUMONIA [None]
  - RESPIRATORY DISORDER [None]
  - SKIN LESION [None]
  - STAPHYLOCOCCAL ABSCESS [None]
